FAERS Safety Report 6177367-X (Version None)
Quarter: 2009Q2

REPORT INFORMATION
  Report Type: 
  Country: None (occurrence: None)
  Receive Date: 20090430
  Receipt Date: 20090430
  Transmission Date: 20091009
  Serious: Yes (Other)
  Sender: FDA-Public Use
  Company Number: None

PATIENT
  Sex: Female
  Weight: 71.2147 kg

DRUGS (2)
  1. HUMIRA [Suspect]
     Indication: CROHN'S DISEASE
     Dosage: 4X 40MG ONCE
     Dates: start: 20090401, end: 20090401
  2. HUMIRA [Suspect]
     Indication: CROHN'S DISEASE
     Dosage: 2X 40MG ONCE
     Dates: start: 20090415, end: 20090415

REACTIONS (3)
  - ABDOMINAL DISTENSION [None]
  - OEDEMA PERIPHERAL [None]
  - WEIGHT INCREASED [None]
